FAERS Safety Report 6338718-6 (Version None)
Quarter: 2009Q3

REPORT INFORMATION
  Report Type: 
  Country: None (occurrence: None)
  Receive Date: 20090903
  Receipt Date: 20090324
  Transmission Date: 20100115
  Serious: Yes (Other)
  Sender: FDA-Public Use
  Company Number: A0770000A

PATIENT
  Age: 11 Year
  Sex: Male

DRUGS (4)
  1. RELENZA [Suspect]
     Dosage: 2PUFF TWICE PER DAY
     Route: 055
     Dates: start: 20090219, end: 20090220
  2. IBUPROFEN [Concomitant]
  3. ENBREL [Concomitant]
  4. METHOTREXATE [Concomitant]

REACTIONS (1)
  - CONVULSION [None]
